FAERS Safety Report 24290899 (Version 1)
Quarter: 2024Q3

REPORT INFORMATION
  Report Type: Spontaneous
  Country: US (occurrence: US)
  Receive Date: 20240906
  Receipt Date: 20240906
  Transmission Date: 20241017
  Serious: No
  Sender: LEXICON PHARMACEUTICALS
  Company Number: US-LEX-000435

PATIENT
  Age: 68 Year
  Sex: Male
  Weight: 99.79 kg

DRUGS (1)
  1. INPEFA [Suspect]
     Active Substance: SOTAGLIFLOZIN
     Indication: Chronic left ventricular failure
     Route: 048
     Dates: start: 20240716, end: 20240813

REACTIONS (1)
  - Feeling abnormal [Unknown]

NARRATIVE: CASE EVENT DATE: 20240813
